FAERS Safety Report 17426166 (Version 1)
Quarter: 2020Q1

REPORT INFORMATION
  Report Type: Other
  Country: None (occurrence: CN)
  Receive Date: 20200218
  Receipt Date: 20200218
  Transmission Date: 20200409
  Serious: Yes (Other)
  Sender: FDA-Public Use
  Company Number: CN-JIANGSU HENGRUI MEDICINE CO., LTD.-2080567

PATIENT
  Age: 49 Year
  Sex: Male
  Weight: 68 kg

DRUGS (4)
  1. PROPOFOL MEDIUM AND LONG CHAIN FAT EMULSION INJECTION?SICHUAN GUORUI P [Suspect]
     Active Substance: PROPOFOL
     Route: 041
     Dates: start: 20200109, end: 20200109
  2. PROPOFOL MEDIUM AND LONG CHAIN FAT EMULSION INJECTION?GUANGDONG JIABO [Suspect]
     Active Substance: PROPOFOL
     Route: 041
     Dates: start: 20200109, end: 20200109
  3. RUIJIE?REMIFENTANIL HYDROCHLORIDE FOR INJECTION?YICHANG HUMANWELL PHAR [Suspect]
     Active Substance: REMIFENTANIL HYDROCHLORIDE
     Route: 041
     Dates: start: 20200109, end: 20200109
  4. CISATRACURIUM BESYLATE INJECTION USP, 10 MG/5 ML (2 MG/ML) AND 200 MG/ [Suspect]
     Active Substance: CISATRACURIUM BESYLATE
     Indication: INDUCTION OF ANAESTHESIA
     Route: 042
     Dates: start: 20200109, end: 20200109

REACTIONS (1)
  - Ventricular fibrillation [Recovered/Resolved]

NARRATIVE: CASE EVENT DATE: 20200109
